FAERS Safety Report 5908456-X (Version None)
Quarter: 2008Q4

REPORT INFORMATION
  Report Type: 
  Country: None (occurrence: None)
  Receive Date: 20081006
  Receipt Date: 20081001
  Transmission Date: 20090506
  Serious: Yes (Hospitalization)
  Sender: FDA-Public Use
  Company Number: US-BRISTOL-MYERS SQUIBB COMPANY-14356794

PATIENT
  Age: 43 Year
  Sex: Female

DRUGS (5)
  1. IXEMPRA KIT [Suspect]
     Dosage: 1ST INFUSION
     Dates: start: 20080716
  2. AVASTIN [Suspect]
  3. DEXAMETHASONE [Concomitant]
     Indication: PREMEDICATION
  4. DARVOCET [Concomitant]
  5. FLORINEF [Concomitant]

REACTIONS (5)
  - ASTHENIA [None]
  - BONE PAIN [None]
  - ORTHOSTATIC HYPOTENSION [None]
  - SYNCOPE [None]
  - TACHYCARDIA [None]
